FAERS Safety Report 7002164-2 (Version None)
Quarter: 2010Q3

REPORT INFORMATION
  Report Type: 
  Country: None (occurrence: None)
  Receive Date: 20100920
  Receipt Date: 20090811
  Transmission Date: 20110219
  Serious: No
  Sender: FDA-Public Use
  Company Number: US-ASTRAZENECA-2009UW13038

PATIENT
  Age: 60 Year
  Sex: Female
  Weight: 49.9 kg

DRUGS (6)
  1. SEROQUEL XR [Suspect]
     Indication: MANIA
     Dosage: 50 MG
     Route: 048
  2. SEROQUEL XR [Suspect]
     Dosage: TITRATED TO 600 MG
     Route: 048
  3. SEROQUEL XR [Suspect]
     Route: 048
     Dates: start: 20090401
  4. ALPRAZOLAM [Concomitant]
     Indication: ANXIETY
  5. ALPRAZOLAM [Concomitant]
     Indication: PANIC DISORDER
  6. ZOLOFT [Concomitant]

REACTIONS (1)
  - OEDEMA [None]
